FAERS Safety Report 5801399-1 (Version None)
Quarter: 2008Q2

REPORT INFORMATION
  Report Type: 
  Country: None (occurrence: None)
  Receive Date: 20080626
  Receipt Date: 20070720
  Transmission Date: 20081010
  Serious: Yes (Hospitalization)
  Sender: FDA-Public Use
  Company Number: 507993

PATIENT
  Age: 62 Year
  Sex: Male
  Weight: 77.6 kg

DRUGS (2)
  1. XELODA [Suspect]
     Indication: COLORECTAL CANCER
     Dosage: 2000 MG 2 PER DAY ORAL
     Route: 048
  2. OXALIPLATIN (OXALIPLATIN) [Concomitant]

REACTIONS (1)
  - DIARRHOEA [None]
